FAERS Safety Report 9601717 (Version 1)
Quarter: 2013Q4

REPORT INFORMATION
  Report Type: Spontaneous
  Country: IE (occurrence: None)
  Receive Date: 20131002
  Receipt Date: 20131002
  Transmission Date: 20140711
  Serious: Yes (Life-Threatening)
  Sender: FDA-Public Use
  Company Number: DAV-AE-MTX-13-54

PATIENT
  Age: 45 Year
  Sex: Female

DRUGS (2)
  1. METHOTREXATE [Suspect]
  2. PREDNISOLONE [Concomitant]

REACTIONS (4)
  - Escherichia test positive [None]
  - Necrotising fasciitis [None]
  - Sepsis [None]
  - Neutrophilia [None]
